FAERS Safety Report 23266938 (Version 1)
Quarter: 2023Q4

REPORT INFORMATION
  Report Type: Spontaneous
  Country: US (occurrence: US)
  Receive Date: 20231206
  Receipt Date: 20231206
  Transmission Date: 20240109
  Serious: Yes (Other)
  Sender: FDA-Public Use
  Company Number: US-GILEAD-2023-0652752

PATIENT
  Age: 63 Year
  Sex: Female

DRUGS (2)
  1. TRODELVY [Suspect]
     Active Substance: SACITUZUMAB GOVITECAN-HZIY
     Indication: Non-small cell lung cancer
     Dosage: UNK
     Route: 042
     Dates: start: 202112, end: 20211224
  2. LOVENOX [Concomitant]
     Active Substance: ENOXAPARIN SODIUM

REACTIONS (12)
  - Pneumonitis [Unknown]
  - Pneumonia [Unknown]
  - Neutropenia [Unknown]
  - Alopecia [Not Recovered/Not Resolved]
  - Nausea [Unknown]
  - Vomiting [Unknown]
  - Diarrhoea [Unknown]
  - Vertigo [Unknown]
  - Epistaxis [Unknown]
  - Fatigue [Unknown]
  - Infection [Unknown]
  - Oral disorder [Unknown]

NARRATIVE: CASE EVENT DATE: 20211201
